FAERS Safety Report 10148115 (Version 1)
Quarter: 2014Q2

REPORT INFORMATION
  Report Type: Spontaneous
  Country: US (occurrence: US)
  Receive Date: 20140501
  Receipt Date: 20140501
  Transmission Date: 20141212
  Serious: No
  Sender: FDA-Public Use
  Company Number: US-AMGEN-USASP2014026856

PATIENT
  Age: 61 Year
  Sex: Female

DRUGS (2)
  1. ENBREL [Suspect]
     Indication: SARCOIDOSIS
     Dosage: 25 MG, 2 TIMES/WK
     Route: 065
     Dates: start: 2005
  2. HUMIRA [Concomitant]
     Dosage: UNK

REACTIONS (6)
  - Myalgia [Recovered/Resolved]
  - Swelling [Recovered/Resolved]
  - Memory impairment [Unknown]
  - Skin tightness [Not Recovered/Not Resolved]
  - Muscle disorder [Not Recovered/Not Resolved]
  - Injection site pain [Not Recovered/Not Resolved]
